FAERS Safety Report 9000185 (Version 2)
Quarter: 2013Q2

REPORT INFORMATION
  Report Type: Report from Study
  Country: NL (occurrence: NL)
  Receive Date: 20130102
  Receipt Date: 20130621
  Transmission Date: 20140414
  Serious: Yes (Hospitalization)
  Sender: FDA-Public Use
  Company Number: NL-ASTRAZENECA-2012SE94509

PATIENT
  Age: 27393 Day
  Sex: Male

DRUGS (12)
  1. AZD6140 [Suspect]
     Indication: CORONARY ARTERY DISEASE
     Route: 048
     Dates: start: 20110922, end: 20120919
  2. HYDROCORTISONACETAAT [Concomitant]
     Indication: ECZEMA
     Route: 061
     Dates: start: 20111201
  3. ISOSORBIDINITRITE [Concomitant]
     Indication: ANGINA PECTORIS
     Dosage: IF NEEDED
     Route: 060
  4. NITROFURANTOIN [Concomitant]
     Indication: URINARY TRACT INFECTION
     Route: 048
     Dates: start: 20111201
  5. SIMVASTATIN [Concomitant]
     Indication: PROPHYLAXIS
     Route: 048
  6. SIMVASTATIN [Concomitant]
     Indication: ACUTE CORONARY SYNDROME
     Route: 048
  7. SALIC ACID [Concomitant]
     Indication: ECZEMA
     Route: 061
     Dates: start: 20111201
  8. METOPROLOL [Concomitant]
     Indication: PROPHYLAXIS
     Route: 048
  9. METOPROLOL [Concomitant]
     Indication: ACUTE CORONARY SYNDROME
     Route: 048
  10. BETAMETASONDIPROPIONAAT [Concomitant]
     Indication: ECZEMA
     Route: 061
     Dates: start: 20111201
  11. ASA [Concomitant]
     Route: 048
     Dates: end: 20121120
  12. ASA [Concomitant]
     Route: 048
     Dates: start: 20121204

REACTIONS (1)
  - Fibroma [Recovered/Resolved]
